FAERS Safety Report 13955302 (Version 1)
Quarter: 2017Q3

REPORT INFORMATION
  Report Type: Spontaneous
  Country: DE (occurrence: DE)
  Receive Date: 20170911
  Receipt Date: 20170911
  Transmission Date: 20171128
  Serious: Yes (Hospitalization)
  Sender: FDA-Public Use
  Company Number: DE-JNJFOC-20170907362

PATIENT
  Age: 82 Year
  Sex: Male
  Weight: 76 kg

DRUGS (2)
  1. XARELTO [Suspect]
     Active Substance: RIVAROXABAN
     Indication: CEREBROVASCULAR ACCIDENT PROPHYLAXIS
     Route: 048
     Dates: start: 20140901, end: 20170830
  2. DABIGATRAN [Concomitant]
     Active Substance: DABIGATRAN
     Route: 065
     Dates: start: 20170831

REACTIONS (3)
  - Ischaemic stroke [Recovering/Resolving]
  - Nausea [Recovering/Resolving]
  - Hemiparesis [Recovering/Resolving]

NARRATIVE: CASE EVENT DATE: 20170826
